FAERS Safety Report 4925123-X (Version None)
Quarter: 2006Q1

REPORT INFORMATION
  Report Type: 
  Country: None (occurrence: None)
  Receive Date: 20060228
  Receipt Date: 20051115
  Transmission Date: 20060701
  Serious: No
  Sender: FDA-Public Use
  Company Number: US-GLAXOSMITHKLINE-A0582386A

PATIENT
  Age: 82 Year
  Sex: Male

DRUGS (9)
  1. AVODART [Suspect]
     Indication: PROSTATE CANCER
     Dosage: .5MG PER DAY
     Route: 048
     Dates: start: 20050401
  2. LUPRON [Concomitant]
  3. CASODEX [Concomitant]
  4. UNKNOWN MEDICATION [Concomitant]
  5. ZOCOR [Concomitant]
  6. COZAAR [Concomitant]
  7. PENTOXIFYLLINE [Concomitant]
  8. ASACOL [Concomitant]
  9. LEVSIN [Concomitant]

REACTIONS (3)
  - ADVERSE EVENT [None]
  - BURNING SENSATION [None]
  - THERAPEUTIC RESPONSE UNEXPECTED [None]
